FAERS Safety Report 10195911 (Version 1)
Quarter: 2014Q2

REPORT INFORMATION
  Report Type: Spontaneous
  Country: US (occurrence: US)
  Receive Date: 20140527
  Receipt Date: 20140527
  Transmission Date: 20141212
  Serious: Yes (Other)
  Sender: FDA-Public Use
  Company Number: US-BAYER-2014-074543

PATIENT
  Sex: Female

DRUGS (3)
  1. BETASERON [Suspect]
     Indication: MULTIPLE SCLEROSIS
     Dosage: UNK UNK, BIW
  2. COPAXONE [Suspect]
     Indication: MULTIPLE SCLEROSIS
     Dosage: UNK, DAILY
  3. AVONEX [Suspect]
     Indication: MULTIPLE SCLEROSIS
     Dosage: UNK, WEEKLY

REACTIONS (8)
  - Multiple sclerosis [Unknown]
  - Multiple sclerosis relapse [Recovered/Resolved]
  - Band sensation [Recovered/Resolved]
  - Dyspnoea [Unknown]
  - Influenza like illness [Recovered/Resolved]
  - Pyrexia [Recovered/Resolved]
  - Nausea [Recovered/Resolved]
  - Dizziness [Recovered/Resolved]
